FAERS Safety Report 5716054-6 (Version None)
Quarter: 2008Q2

REPORT INFORMATION
  Report Type: 
  Country: None (occurrence: None)
  Receive Date: 20080423
  Receipt Date: 20080423
  Transmission Date: 20081010
  Serious: Yes (Hospitalization)
  Sender: FDA-Public Use
  Company Number: None

PATIENT
  Age: 54 Year
  Sex: Female
  Weight: 72.1219 kg

DRUGS (1)
  1. ZELNORM [Suspect]
     Indication: IRRITABLE BOWEL SYNDROME
     Dosage: 6MG. 1 TAB TWICE A DAY PO
     Route: 048
     Dates: start: 20070131, end: 20070531

REACTIONS (3)
  - DIVERTICULITIS [None]
  - INTESTINAL OBSTRUCTION [None]
  - POST PROCEDURAL COMPLICATION [None]
